FAERS Safety Report 17983757 (Version 1)
Quarter: 2020Q3

REPORT INFORMATION
  Report Type: Spontaneous
  Country: US (occurrence: US)
  Receive Date: 20200704
  Receipt Date: 20200704
  Transmission Date: 20201103
  Serious: No
  Sender: FDA-Public Use
  Company Number: None

PATIENT
  Age: 63 Year
  Sex: Female

DRUGS (1)
  1. CAPECITABINE 500MG NOVADOZ PHARMACEUTICS [Suspect]
     Active Substance: CAPECITABINE
     Indication: BRAIN CANCER METASTATIC
     Route: 048
     Dates: start: 202006

REACTIONS (3)
  - Dyspnoea [None]
  - Eye pain [None]
  - Headache [None]

NARRATIVE: CASE EVENT DATE: 202006
